FAERS Safety Report 8085984-5 (Version None)
Quarter: 2012Q1

REPORT INFORMATION
  Report Type: 
  Country: None (occurrence: None)
  Receive Date: 20120128
  Receipt Date: 20110520
  Transmission Date: 20120608
  Serious: No
  Sender: FDA-Public Use
  Company Number: US-ABBOTT-11P-163-0723729-00

PATIENT
  Sex: Female

DRUGS (8)
  1. HUMIRA [Suspect]
     Route: 058
     Dates: start: 20110416
  2. HUMIRA [Suspect]
     Indication: PSORIASIS
     Dosage: ONCE, 1ST LOADING DOSE
     Route: 058
     Dates: start: 20110408, end: 20110408
  3. PAROXETINE [Concomitant]
     Indication: ANXIETY
  4. HUMIRA [Suspect]
     Indication: PSORIASIS
     Route: 058
     Dates: start: 20110513
  5. HYDROCHLOROTHIAZIDE [Concomitant]
     Indication: BLOOD PRESSURE
     Dates: start: 20110401
  6. DIFLORASONE [Concomitant]
     Indication: PSORIASIS
     Route: 061
  7. PRAVASTATIN [Concomitant]
     Indication: BLOOD CHOLESTEROL
  8. AMITRIPTYLINE HCL [Concomitant]
     Indication: MIGRAINE PROPHYLAXIS

REACTIONS (3)
  - INJECTION SITE INDURATION [None]
  - INJECTION SITE ERYTHEMA [None]
  - INJECTION SITE HAEMATOMA [None]
